FAERS Safety Report 15239726 (Version 1)
Quarter: 2018Q3

REPORT INFORMATION
  Report Type: Spontaneous
  Country: US (occurrence: US)
  Receive Date: 20180803
  Receipt Date: 20180803
  Transmission Date: 20181010
  Serious: Yes (Hospitalization)
  Sender: FDA-Public Use
  Company Number: US-SUNOVION-2018SUN003039

PATIENT
  Sex: Female

DRUGS (1)
  1. LATUDA [Suspect]
     Active Substance: LURASIDONE HYDROCHLORIDE
     Indication: BIPOLAR DISORDER
     Dosage: UNK
     Route: 048
     Dates: start: 201712

REACTIONS (6)
  - Tremor [Unknown]
  - Blood potassium decreased [Unknown]
  - Motor dysfunction [Unknown]
  - Malaise [Unknown]
  - Feeling hot [Unknown]
  - Vomiting [Recovered/Resolved]
